FAERS Safety Report 6371060-6 (Version None)
Quarter: 2009Q3

REPORT INFORMATION
  Report Type: 
  Country: None (occurrence: None)
  Receive Date: 20090923
  Receipt Date: 20090911
  Transmission Date: 20100115
  Serious: Yes (Other)
  Sender: FDA-Public Use
  Company Number: JP-PFIZER INC-2009269945

PATIENT
  Age: 48 Year

DRUGS (3)
  1. SOLANAX [Suspect]
     Dosage: UNK
     Route: 048
     Dates: start: 20060101
  2. GABAPENTIN [Concomitant]
  3. ATARAX [Concomitant]

REACTIONS (2)
  - ABNORMAL BEHAVIOUR [None]
  - AMNESIA [None]
